FAERS Safety Report 7779888-2 (Version None)
Quarter: 2011Q3

REPORT INFORMATION
  Report Type: 
  Country: None (occurrence: None)
  Receive Date: 20110927
  Receipt Date: 20110228
  Transmission Date: 20111222
  Serious: No
  Sender: FDA-Public Use
  Company Number: US-ASTRAZENECA-2011SE11069

PATIENT
  Age: 42 Year
  Sex: Female

DRUGS (5)
  1. SEROQUEL [Suspect]
     Indication: BIPOLAR DISORDER
     Route: 048
     Dates: start: 20040101
  2. INTERFERON [Suspect]
     Route: 065
  3. SEROQUEL [Suspect]
     Route: 048
     Dates: end: 20050101
  4. SEROQUEL [Suspect]
     Route: 048
     Dates: start: 20090101
  5. TRAZODONE HCL [Concomitant]

REACTIONS (6)
  - SEDATION [None]
  - NO ADVERSE EVENT [None]
  - ANXIETY [None]
  - BIPOLAR DISORDER [None]
  - DRUG DOSE OMISSION [None]
  - THERAPEUTIC RESPONSE UNEXPECTED [None]
